FAERS Safety Report 10395613 (Version 1)
Quarter: 2014Q3

REPORT INFORMATION
  Report Type: Spontaneous
  Country: US (occurrence: None)
  Receive Date: 20140815
  Receipt Date: 20140815
  Transmission Date: 20150326
  Serious: No
  Sender: FDA-Public Use
  Company Number: None

PATIENT
  Age: 70 Year
  Sex: Male
  Weight: 86.18 kg

DRUGS (1)
  1. CARAFATE [Suspect]
     Active Substance: SUCRALFATE
     Dosage: 2 TSP
     Route: 048
     Dates: start: 20140805, end: 20140806

REACTIONS (3)
  - Product physical consistency issue [None]
  - Drug ineffective [None]
  - Liquid product physical issue [None]

NARRATIVE: CASE EVENT DATE: 20140808
